FAERS Safety Report 8830351 (Version 1)
Quarter: 2012Q4

REPORT INFORMATION
  Report Type: 
  Country: JP (occurrence: JP)
  Receive Date: 20121009
  Receipt Date: 20121009
  Transmission Date: 20130627
  Serious: Yes (Hospitalization, Other)
  Sender: FDA-Public Use
  Company Number: JP-BAXTER-2012BAX018432

PATIENT
  Sex: Male

DRUGS (3)
  1. DIANEAL PD-4 PERITONEAL DIALYSIS SOLUTION WITH 2.5% W_V GLUCOSE LOW CA [Suspect]
     Indication: RENAL FAILURE CHRONIC
     Route: 033
     Dates: start: 20051220
  2. DIANEAL PD-4 PERITONEAL DIALYSIS SOLUTION WITH 2.5% W_V GLUCOSE LOW CA [Suspect]
     Route: 033
     Dates: start: 20051220
  3. EXTRANEAL [Suspect]
     Indication: RENAL FAILURE CHRONIC
     Route: 033
     Dates: start: 20051220

REACTIONS (4)
  - Femoral neck fracture [Not Recovered/Not Resolved]
  - Sepsis [Not Recovered/Not Resolved]
  - Gingival infection [Not Recovered/Not Resolved]
  - Fall [Unknown]
